FAERS Safety Report 9868339 (Version 1)
Quarter: 2014Q1

REPORT INFORMATION
  Report Type: Spontaneous
  Country: US (occurrence: US)
  Receive Date: 20140204
  Receipt Date: 20140204
  Transmission Date: 20141002
  Serious: Yes (Hospitalization)
  Sender: FDA-Public Use
  Company Number: US-JNJFOC-20140117018

PATIENT
  Sex: 0

DRUGS (1)
  1. ITRACONAZOLE [Suspect]
     Indication: HISTOPLASMOSIS
     Route: 048

REACTIONS (2)
  - Hospitalisation [Unknown]
  - Diarrhoea [Unknown]
